FAERS Safety Report 18740028 (Version 1)
Quarter: 2021Q1

REPORT INFORMATION
  Report Type: Spontaneous
  Country: US (occurrence: US)
  Receive Date: 20210114
  Receipt Date: 20210114
  Transmission Date: 20210419
  Serious: Yes (Hospitalization)
  Sender: FDA-Public Use
  Company Number: None

PATIENT
  Age: 75 Year
  Sex: Male
  Weight: 118.8 kg

DRUGS (6)
  1. BAMLANIVIMAB. [Suspect]
     Active Substance: BAMLANIVIMAB
     Indication: COVID-19
     Dosage: ?          OTHER FREQUENCY:ONCE;?
     Route: 042
     Dates: start: 20210112, end: 20210112
  2. VERAPAMIL SR 240 MG [Concomitant]
     Dates: start: 20200218
  3. LISINOPRIL 30 MG [Concomitant]
     Dates: start: 20200218
  4. INDOMETHACIN 50 MG [Concomitant]
     Dates: start: 20200705
  5. ALLOPURINOL 50 MG [Concomitant]
     Dates: start: 20200617
  6. OXYBUTYNIN XL 10 MG [Concomitant]
     Dates: start: 20200901

REACTIONS (5)
  - Dyspnoea [None]
  - Hypophagia [None]
  - Blood pressure decreased [None]
  - Diarrhoea [None]
  - Oxygen saturation decreased [None]

NARRATIVE: CASE EVENT DATE: 20210112
